FAERS Safety Report 16684922 (Version 1)
Quarter: 2019Q3

REPORT INFORMATION
  Report Type: Spontaneous
  Country: FR (occurrence: FR)
  Receive Date: 20190808
  Receipt Date: 20190808
  Transmission Date: 20191004
  Serious: Yes (Other)
  Sender: FDA-Public Use
  Company Number: FR-MYLANLABS-2019M1073253

PATIENT
  Age: 50 Year

DRUGS (2)
  1. ROCILETINIB [Suspect]
     Active Substance: ROCILETINIB
     Indication: ADENOCARCINOMA
     Dosage: UNK
     Route: 065
  2. ERLOTINIB [Suspect]
     Active Substance: ERLOTINIB
     Indication: ADENOCARCINOMA
     Dosage: AS SECOND LINE AFTER EGFR 1G TKI
     Route: 065

REACTIONS (4)
  - Disease progression [Unknown]
  - Adenocarcinoma [Unknown]
  - EGFR gene mutation [Unknown]
  - Drug resistance [Unknown]
